FAERS Safety Report 11720044 (Version 2)
Quarter: 2016Q1

REPORT INFORMATION
  Report Type: Report from Study
  Country: DE (occurrence: DE)
  Receive Date: 20151110
  Receipt Date: 20160120
  Transmission Date: 20160525
  Serious: Yes (Hospitalization)
  Sender: FDA-Public Use
  Company Number: DE-ROCHE-1656537

PATIENT
  Age: 51 Year
  Sex: Female

DRUGS (8)
  1. INDOMET [Concomitant]
     Active Substance: INDOMETHACIN
  2. PREDNISOLON [Concomitant]
     Active Substance: PREDNISOLONE
  3. RAMIPRIL. [Concomitant]
     Active Substance: RAMIPRIL
  4. TOCILIZUMAB [Suspect]
     Active Substance: TOCILIZUMAB
     Indication: RHEUMATOID ARTHRITIS
     Route: 058
     Dates: end: 20150807
  5. CALCIMAGON [Concomitant]
     Active Substance: CALCIUM
  6. DEKRISTOL [Concomitant]
     Active Substance: CHOLECALCIFEROL
  7. PANTOZOL [Concomitant]
     Active Substance: PANTOPRAZOLE SODIUM
  8. DESLORATADIN [Concomitant]

REACTIONS (1)
  - Poor peripheral circulation [Recovered/Resolved]

NARRATIVE: CASE EVENT DATE: 20150814
